FAERS Safety Report 4935144-9 (Version None)
Quarter: 2006Q1

REPORT INFORMATION
  Report Type: 
  Country: None (occurrence: None)
  Receive Date: 20060302
  Receipt Date: 20060221
  Transmission Date: 20060701
  Serious: Yes (Hospitalization)
  Sender: FDA-Public Use
  Company Number: 2006025485

PATIENT
  Age: 91 Year
  Sex: Female

DRUGS (6)
  1. NORVASC [Suspect]
     Indication: HYPERTENSION
     Dosage: 10 MG (DAILY),
     Dates: start: 20060201
  2. LISINOPRIL [Suspect]
     Indication: ILL-DEFINED DISORDER
  3. ATENOLOL [Suspect]
     Indication: ILL-DEFINED DISORDER
  4. NORVASC [Concomitant]
  5. LISINOPRIL [Concomitant]
  6. ATENOLOL [Concomitant]

REACTIONS (3)
  - FALL [None]
  - RESTLESSNESS [None]
  - WRIST FRACTURE [None]
